FAERS Safety Report 20622176 (Version 1)
Quarter: 2022Q1

REPORT INFORMATION
  Report Type: Spontaneous
  Country: ZA (occurrence: None)
  Receive Date: 20220322
  Receipt Date: 20220322
  Transmission Date: 20220423
  Serious: Yes (Hospitalization)
  Sender: FDA-Public Use
  Company Number: ZA-Merck Healthcare KGaA-9292947

PATIENT
  Age: 56 Year
  Sex: Female

DRUGS (5)
  1. EUTHYROX [Suspect]
     Active Substance: LEVOTHYROXINE SODIUM
     Indication: Hypothyroidism
     Route: 048
  2. EUTHYROX [Suspect]
     Active Substance: LEVOTHYROXINE SODIUM
     Dosage: NEW FORMULATION
     Route: 048
     Dates: end: 202112
  3. EUTHYROX [Suspect]
     Active Substance: LEVOTHYROXINE SODIUM
     Dosage: TOOK TWO WEEKS ERRONEOUSLY
     Route: 048
     Dates: start: 202112, end: 202112
  4. EUTHYROX [Suspect]
     Active Substance: LEVOTHYROXINE SODIUM
     Dosage: DOSE REDUCED
     Route: 048
     Dates: start: 202201
  5. LEVOTHYROXINE [Suspect]
     Active Substance: LEVOTHYROXINE
     Indication: Hypothyroidism
     Dates: start: 2021, end: 2021

REACTIONS (22)
  - Dyspnoea [Unknown]
  - Blood glucose increased [Unknown]
  - Asthma [Unknown]
  - Anxiety [Unknown]
  - Onychoclasis [Unknown]
  - Dry skin [Unknown]
  - Depression [Unknown]
  - Alopecia [Unknown]
  - Dysphonia [Unknown]
  - Palpitations [Unknown]
  - Angina pectoris [Unknown]
  - Heart rate irregular [Unknown]
  - Hypertension [Unknown]
  - Hospitalisation [Unknown]
  - Myalgia [Unknown]
  - Pain in extremity [Unknown]
  - Asthenia [Unknown]
  - Thyroid function test abnormal [Unknown]
  - Weight increased [Unknown]
  - Goitre [Unknown]
  - Eye swelling [Unknown]
  - Treatment noncompliance [Unknown]

NARRATIVE: CASE EVENT DATE: 20210101
